FAERS Safety Report 12325193 (Version 1)
Quarter: 2016Q2

REPORT INFORMATION
  Report Type: Spontaneous
  Country: US (occurrence: US)
  Receive Date: 20160502
  Receipt Date: 20160502
  Transmission Date: 20160815
  Serious: No
  Sender: FDA-Public Use
  Company Number: US-WOCKHARDT USA, LLC-1051309

PATIENT
  Age: 67 Year
  Sex: Female

DRUGS (10)
  1. ENALAPRIL MALEATE. [Suspect]
     Active Substance: ENALAPRIL MALEATE
     Indication: HYPERTENSION
     Route: 048
     Dates: start: 20160201
  2. ALLERGY SHOT [Concomitant]
     Active Substance: UNSPECIFIED INGREDIENT
  3. CLONAZEPAM. [Concomitant]
     Active Substance: CLONAZEPAM
  4. PROBIOTICS [Concomitant]
     Active Substance: PROBIOTICS NOS
  5. CALCIUM [Concomitant]
     Active Substance: CALCIUM
  6. ATENOLOL. [Concomitant]
     Active Substance: ATENOLOL
     Dates: start: 2006
  7. PEPCID [Concomitant]
     Active Substance: FAMOTIDINE
  8. HYPOSENSITIZATION IMMUNOTHERAPY FOR BEE STINGS [Concomitant]
  9. B12 INJECTION [Concomitant]
  10. OMEPRAZOLE. [Concomitant]
     Active Substance: OMEPRAZOLE

REACTIONS (3)
  - Chest discomfort [None]
  - Orthostatic hypotension [None]
  - Dizziness [None]

NARRATIVE: CASE EVENT DATE: 20160329
